FAERS Safety Report 13973185 (Version 1)
Quarter: 2017Q3

REPORT INFORMATION
  Report Type: Spontaneous
  Country: CH (occurrence: CH)
  Receive Date: 20170915
  Receipt Date: 20170915
  Transmission Date: 20171128
  Serious: Yes (Other)
  Sender: FDA-Public Use
  Company Number: CH-JNJFOC-20170127900

PATIENT

DRUGS (1)
  1. STELARA [Suspect]
     Active Substance: USTEKINUMAB
     Indication: CROHN^S DISEASE
     Route: 058

REACTIONS (14)
  - Conjunctivitis [Unknown]
  - Adverse event [Unknown]
  - Arthralgia [Unknown]
  - Diarrhoea [Unknown]
  - Myalgia [Unknown]
  - Product use in unapproved indication [Unknown]
  - Off label use [Unknown]
  - Pharyngitis [Unknown]
  - Fatigue [Unknown]
  - Dyspnoea [Unknown]
  - Urinary tract infection [Unknown]
  - Pneumonia [Unknown]
  - Erythema [Unknown]
  - Chills [Unknown]
